FAERS Safety Report 21593872 (Version 2)
Quarter: 2023Q1

REPORT INFORMATION
  Report Type: Spontaneous
  Country: US (occurrence: US)
  Receive Date: 20221115
  Receipt Date: 20230112
  Transmission Date: 20230417
  Serious: No
  Sender: FDA-Public Use
  Company Number: US-UNITED THERAPEUTICS-UNT-2022-019642

PATIENT
  Sex: Female

DRUGS (4)
  1. TYVASO DPI [Suspect]
     Active Substance: TREPROSTINIL
     Indication: Pulmonary arterial hypertension
     Dosage: 16 ?G, QID
     Dates: start: 20220823
  2. TYVASO DPI [Suspect]
     Active Substance: TREPROSTINIL
     Indication: Pulmonary arterial hypertension
     Dosage: UNK
  3. TYVASO [Suspect]
     Active Substance: TREPROSTINIL
     Indication: Pulmonary arterial hypertension
     Dosage: UNK
     Dates: start: 20210701
  4. TYVASO [Suspect]
     Active Substance: TREPROSTINIL
     Dosage: 24 ?G, QID

REACTIONS (7)
  - Nervousness [Unknown]
  - Cough [Unknown]
  - Fatigue [Not Recovered/Not Resolved]
  - Chest pain [Unknown]
  - Headache [Unknown]
  - Oxygen consumption increased [Not Recovered/Not Resolved]
  - Temperature intolerance [Unknown]

NARRATIVE: CASE EVENT DATE: 20220101
